FAERS Safety Report 5727534-1 (Version None)
Quarter: 2008Q2

REPORT INFORMATION
  Report Type: 
  Country: None (occurrence: None)
  Receive Date: 20080501
  Receipt Date: 20080501
  Transmission Date: 20081010
  Serious: Yes (Other)
  Sender: FDA-Public Use
  Company Number: None

PATIENT
  Age: 51 Year
  Sex: Female
  Weight: 65.318 kg

DRUGS (3)
  1. BUPROPION HCL [Suspect]
     Indication: BACK PAIN
     Dosage: 1 TABLET AM
     Dates: start: 20080422, end: 20080424
  2. BUPROPION HCL [Suspect]
     Indication: MENOPAUSE
     Dosage: 1 TABLET AM
     Dates: start: 20080422, end: 20080424
  3. BUPROPION HCL [Suspect]
     Indication: MOOD SWINGS
     Dosage: 1 TABLET AM
     Dates: start: 20080422, end: 20080424

REACTIONS (6)
  - BLOOD GLUCOSE INCREASED [None]
  - DIZZINESS [None]
  - FEELING COLD [None]
  - HEART RATE INCREASED [None]
  - MALAISE [None]
  - TREMOR [None]
